FAERS Safety Report 25595889 (Version 3)
Quarter: 2025Q3

REPORT INFORMATION
  Report Type: Report from Study
  Country: EU (occurrence: EU)
  Receive Date: 20250723
  Receipt Date: 20250826
  Transmission Date: 20251021
  Serious: Yes (Hospitalization)
  Sender: EISAI
  Company Number: EU-Eisai-EC-2025-193373

PATIENT
  Age: 73 Year
  Sex: Female
  Weight: 78.00 kg

DRUGS (39)
  1. ERIBULIN [Suspect]
     Active Substance: ERIBULIN
     Indication: HER2 positive breast cancer
     Route: 042
     Dates: start: 20250613, end: 20250613
  2. ERIBULIN [Suspect]
     Active Substance: ERIBULIN
     Route: 042
     Dates: start: 20250620, end: 20250620
  3. ERIBULIN [Suspect]
     Active Substance: ERIBULIN
     Route: 042
     Dates: start: 20250723, end: 20250723
  4. TRASTUZUMAB [Suspect]
     Active Substance: TRASTUZUMAB
     Indication: HER2 positive breast cancer
     Dates: start: 20250613, end: 20250613
  5. TRASTUZUMAB [Suspect]
     Active Substance: TRASTUZUMAB
     Dates: start: 20250723, end: 20250723
  6. CALCIUM CARBONATE\CHOLECALCIFEROL [Concomitant]
     Active Substance: CALCIUM CARBONATE\CHOLECALCIFEROL
  7. LACTATED RINGERS SOLUTION [Concomitant]
     Active Substance: CALCIUM CHLORIDE\POTASSIUM CHLORIDE\SODIUM CHLORIDE\SODIUM LACTATE
     Dates: start: 20250520, end: 20250521
  8. CIMETIDINE [Concomitant]
     Active Substance: CIMETIDINE
     Dates: start: 20250613, end: 20250613
  9. CIMETIDINE [Concomitant]
     Active Substance: CIMETIDINE
     Dates: start: 20250620, end: 20250620
  10. DEXATON [Concomitant]
     Dates: start: 20250613, end: 20250620
  11. ONDANSETRON [Concomitant]
     Active Substance: ONDANSETRON
     Dates: start: 20250520, end: 20250521
  12. ONDANSETRON [Concomitant]
     Active Substance: ONDANSETRON
     Dates: start: 20250620, end: 20250728
  13. FILGRASTIM [Concomitant]
     Active Substance: FILGRASTIM
     Dates: start: 20250614, end: 20250726
  14. ACETAMINOPHEN [Concomitant]
     Active Substance: ACETAMINOPHEN
     Dates: start: 20250614, end: 20250730
  15. ALBUMIN HUMAN [Concomitant]
     Active Substance: ALBUMIN HUMAN
     Dates: start: 20250625, end: 20250708
  16. DEXAMETHASONE ACETATE;LIDOCAINE HYDROCHLORIDE [Concomitant]
     Dates: start: 20250625, end: 20250702
  17. FUROSEMIDE [Concomitant]
     Active Substance: FUROSEMIDE
     Dates: start: 20250620, end: 20250718
  18. OMEPRAZOLE [Concomitant]
     Active Substance: OMEPRAZOLE
  19. PIPERACILLIN AND TAZOBACTAM [Concomitant]
     Active Substance: PIPERACILLIN SODIUM\TAZOBACTAM SODIUM
     Dates: start: 20250625, end: 20250801
  20. POTASSIUM CHLORIDE [Concomitant]
     Active Substance: POTASSIUM CHLORIDE
     Dates: start: 20250625, end: 20250708
  21. POTASSIUM GLYCONATE [Concomitant]
     Dates: start: 20250625, end: 20250627
  22. SACCHAROMYCES CEREVISIAE [Concomitant]
     Active Substance: SACCHAROMYCES CEREVISIAE
     Dates: start: 20250625, end: 20250801
  23. TINZAPARIN [Concomitant]
     Active Substance: TINZAPARIN
     Dates: start: 20250625, end: 20250713
  24. VANCOMYCIN [Concomitant]
     Active Substance: VANCOMYCIN
     Dates: start: 20250625, end: 20250701
  25. MAGNESIUM ASPARTATE [Concomitant]
     Active Substance: MAGNESIUM ASPARTATE
     Dates: start: 20250627, end: 20250702
  26. MEROPENEM [Concomitant]
     Active Substance: MEROPENEM
     Dates: start: 20250629, end: 20250702
  27. CASPOFUNGIN [Concomitant]
     Active Substance: CASPOFUNGIN
     Dates: start: 20250630, end: 20250702
  28. ALFACALCIDOL [Concomitant]
     Active Substance: ALFACALCIDOL
  29. AMOXICILLIN\CLAVULANIC ACID [Concomitant]
     Active Substance: AMOXICILLIN\CLAVULANIC ACID
     Dates: start: 20250702, end: 20250705
  30. MONTMORILLONITE [Concomitant]
     Active Substance: MONTMORILLONITE
     Dates: start: 20250702, end: 20250704
  31. FLUCONAZOLE [Concomitant]
     Active Substance: FLUCONAZOLE
     Dates: start: 20250703, end: 20250717
  32. SODIUM CHLORIDE [Concomitant]
     Active Substance: SODIUM CHLORIDE
  33. ESOMEPRAZOLE [Concomitant]
     Active Substance: ESOMEPRAZOLE
     Dates: start: 20250709, end: 20250729
  34. DULOXETINE [Concomitant]
     Active Substance: DULOXETINE
  35. DENOSUMAB [Concomitant]
     Active Substance: DENOSUMAB
  36. DEXAMETHASONE [Concomitant]
     Active Substance: DEXAMETHASONE
     Dates: start: 20250520, end: 20250702
  37. OMEPRAZOLE [Concomitant]
     Active Substance: OMEPRAZOLE
     Dates: start: 20250520, end: 20250708
  38. EPOETIN ALFA [Concomitant]
     Active Substance: ERYTHROPOIETIN
  39. SOPA K [Concomitant]
     Dates: start: 20250718, end: 20250722

REACTIONS (2)
  - Febrile neutropenia [Recovered/Resolved]
  - Fatigue [Not Recovered/Not Resolved]

NARRATIVE: CASE EVENT DATE: 20250625
